FAERS Safety Report 25278924 (Version 3)
Quarter: 2025Q3

REPORT INFORMATION
  Report Type: Report from Study
  Country: US (occurrence: US)
  Receive Date: 20250507
  Receipt Date: 20250829
  Transmission Date: 20251021
  Serious: Yes (Other)
  Sender: ABBVIE
  Company Number: US-ABBVIE-6264412

PATIENT
  Age: 69 Year
  Sex: Female

DRUGS (1)
  1. SKYRIZI [Suspect]
     Active Substance: RISANKIZUMAB-RZAA
     Indication: Psoriasis
     Route: 058
     Dates: start: 20241202

REACTIONS (4)
  - Squamous cell carcinoma [Unknown]
  - Actinic keratosis [Unknown]
  - Seborrhoeic keratosis [Unknown]
  - Skin irritation [Unknown]

NARRATIVE: CASE EVENT DATE: 20250101
